FAERS Safety Report 8322114-6 (Version None)
Quarter: 2012Q2

REPORT INFORMATION
  Report Type: 
  Country: None (occurrence: None)
  Receive Date: 20120430
  Receipt Date: 20120420
  Transmission Date: 20120825
  Serious: Yes (Other)
  Sender: FDA-Public Use
  Company Number: TW-ROCHE-1063231

PATIENT
  Sex: Male

DRUGS (12)
  1. XELODA [Suspect]
     Dates: start: 20091201, end: 20100301
  2. FLUOROURACIL [Suspect]
     Dates: start: 20120301
  3. LEUCOVORIN CALCIUM [Suspect]
     Indication: COLON CANCER METASTATIC
     Dates: start: 20090201, end: 20090401
  4. FLUOROURACIL [Suspect]
     Dates: start: 20091201, end: 20100301
  5. FLUOROURACIL [Suspect]
     Dates: start: 20100901, end: 20111001
  6. IRINOTECAN HCL [Suspect]
     Indication: COLON CANCER METASTATIC
     Dates: start: 20090201, end: 20090401
  7. OXALIPLATIN [Suspect]
     Indication: COLON CANCER METASTATIC
     Dates: start: 20090401, end: 20090401
  8. XELODA [Suspect]
     Indication: COLON CANCER METASTATIC
     Dates: start: 20090401, end: 20090901
  9. XELODA [Suspect]
     Dates: start: 20100901, end: 20111001
  10. AVASTIN [Suspect]
     Indication: COLON CANCER METASTATIC
     Dates: start: 20090201, end: 20090901
  11. XELODA [Suspect]
     Dates: start: 20120301
  12. FLUOROURACIL [Suspect]
     Indication: COLON CANCER METASTATIC
     Dates: start: 20090201, end: 20090401

REACTIONS (1)
  - AORTIC DISSECTION [None]
